FAERS Safety Report 6940885-8 (Version None)
Quarter: 2010Q3

REPORT INFORMATION
  Report Type: 
  Country: None (occurrence: None)
  Receive Date: 20100825
  Receipt Date: 20100820
  Transmission Date: 20110219
  Serious: Yes (Death, Hospitalization)
  Sender: FDA-Public Use
  Company Number: JP-BAYER-201011707BYL

PATIENT
  Age: 79 Year
  Sex: Male
  Weight: 59 kg

DRUGS (10)
  1. NEXAVAR [Suspect]
     Indication: HEPATIC NEOPLASM MALIGNANT
     Dosage: TOTAL DAILY DOSE: 800 MG  UNIT DOSE: 200 MG
     Route: 048
     Dates: start: 20100326, end: 20100408
  2. TOPSYM [Concomitant]
     Indication: PROPHYLAXIS
     Route: 061
     Dates: start: 20100326, end: 20100408
  3. LOCOID [Concomitant]
     Indication: PROPHYLAXIS
     Route: 061
     Dates: start: 20100326, end: 20100408
  4. HIRUDOID [Concomitant]
     Indication: PROPHYLAXIS
     Route: 061
     Dates: start: 20100326, end: 20100408
  5. AMLODIPINE OD [Concomitant]
     Dosage: UNIT DOSE: 5 MG
     Route: 048
     Dates: end: 20100408
  6. TAMSULOSIN HCL [Concomitant]
     Dosage: BEFORE NEXAVAR ADMINISTRATION
     Route: 048
     Dates: end: 20100408
  7. GASLON [Concomitant]
     Dosage: BEFORE NEXAVAR ADMINISTRATION
     Route: 048
     Dates: end: 20100408
  8. URSO 250 [Concomitant]
     Dosage: BEFORE NEXAVAR ADMINISTRATION
     Route: 048
     Dates: end: 20100408
  9. LASIX [Concomitant]
     Dosage: BEFORE NEXAVAR ADMINISTRATION
     Route: 048
     Dates: end: 20100408
  10. ALDACTONE [Concomitant]
     Dosage: BEFORE NEXAVAR ADMINISTRATION
     Route: 048
     Dates: end: 20100408

REACTIONS (3)
  - ASCITES [None]
  - HEPATIC FUNCTION ABNORMAL [None]
  - OESOPHAGEAL VARICES HAEMORRHAGE [None]
